FAERS Safety Report 10066252 (Version 1)
Quarter: 2014Q2

REPORT INFORMATION
  Report Type: Report from Study
  Country: US (occurrence: US)
  Receive Date: 20140408
  Receipt Date: 20140408
  Transmission Date: 20141212
  Serious: Yes (Hospitalization, Other)
  Sender: FDA-Public Use
  Company Number: US-ASTELLAS-2014US003580

PATIENT
  Sex: Female

DRUGS (9)
  1. ERLOTINIB TABLET [Suspect]
     Indication: LUNG NEOPLASM MALIGNANT
     Dosage: 150 MG, UID/QD
     Route: 048
     Dates: start: 200508, end: 20090212
  2. ERLOTINIB TABLET [Suspect]
     Dosage: 150 MG, UID/QD
     Route: 048
     Dates: start: 201307
  3. ERLOTINIB TABLET [Suspect]
     Dosage: 50 MG, UID/QD
     Route: 048
     Dates: start: 2014
  4. ALLOPURINOL [Concomitant]
     Indication: GOUT
     Dosage: UNK
     Route: 065
  5. FUROSEMIDE [Concomitant]
     Indication: PRODUCT USED FOR UNKNOWN INDICATION
     Dosage: UNK
     Route: 065
  6. VENLAFAXINE [Concomitant]
     Indication: DEPRESSION
     Dosage: UNK
     Route: 065
  7. LEVOTHYROXINE                      /00068002/ [Concomitant]
     Indication: THYROID DISORDER
     Dosage: UNK
     Route: 065
  8. BAYER ASPIRIN [Concomitant]
     Indication: PRODUCT USED FOR UNKNOWN INDICATION
     Dosage: UNK
     Route: 065
  9. PROPRANOLOL                        /00030002/ [Concomitant]
     Indication: TREMOR
     Dosage: UNK
     Route: 065

REACTIONS (11)
  - Haemolysis [Recovered/Resolved]
  - Myocardial infarction [Recovered/Resolved]
  - Disease progression [Not Recovered/Not Resolved]
  - Malignant neoplasm progression [Unknown]
  - Haematemesis [Recovered/Resolved]
  - Sleep disorder [Not Recovered/Not Resolved]
  - Nail bed infection fungal [Recovered/Resolved]
  - Hair growth abnormal [Recovered/Resolved]
  - Hyperkeratosis [Recovered/Resolved]
  - Diarrhoea [Recovering/Resolving]
  - Growth of eyelashes [Recovered/Resolved]
